FAERS Safety Report 10563445 (Version 2)
Quarter: 2014Q4

REPORT INFORMATION
  Report Type: Spontaneous
  Country: US (occurrence: US)
  Receive Date: 20141104
  Receipt Date: 20141124
  Transmission Date: 20150529
  Serious: No
  Sender: FDA-Public Use
  Company Number: US-PFIZER INC-2014301909

PATIENT
  Age: 68 Year
  Sex: Female

DRUGS (2)
  1. INLYTA [Suspect]
     Active Substance: AXITINIB
     Dosage: 5 MG, CYCLIC (1 PILL FOR 6 DAYS, THEN1 DAY OFF)
     Route: 048
     Dates: start: 20140528
  2. INLYTA [Suspect]
     Active Substance: AXITINIB
     Indication: RENAL CELL CARCINOMA
     Dosage: 5 MG, CYCLIC (1 PILL FOR 6 DAYS, THEN1 DAY OFF)
     Route: 048
     Dates: start: 20120321, end: 20130321

REACTIONS (1)
  - Aphonia [Not Recovered/Not Resolved]
